FAERS Safety Report 16366827 (Version 1)
Quarter: 2019Q2

REPORT INFORMATION
  Report Type: Spontaneous
  Country: FR (occurrence: FR)
  Receive Date: 20190529
  Receipt Date: 20190529
  Transmission Date: 20190711
  Serious: Yes (Hospitalization)
  Sender: FDA-Public Use
  Company Number: FR-FRESENIUS KABI-FK201905870

PATIENT
  Age: 51 Year
  Sex: Female
  Weight: 85.3 kg

DRUGS (10)
  1. DICLOFENAC SODIUM. [Concomitant]
     Active Substance: DICLOFENAC SODIUM
  2. PACLITAXEL (MANUFACTURER UNKNOWN) [Suspect]
     Active Substance: PACLITAXEL
     Indication: BREAST CANCER
     Route: 041
     Dates: start: 20190314, end: 20190329
  3. PROMEGESTONE [Concomitant]
     Active Substance: PROMEGESTONE
  4. PHENYLEPHRINE HYDROCHLORIDE/GUAIFENESIN/CHLORPHENAMINE MALEATE/DEXTROMETHORPHAN HYDROBROMIDE [Concomitant]
  5. SOTALOL. [Concomitant]
     Active Substance: SOTALOL
  6. OMEPRAZOLE. [Concomitant]
     Active Substance: OMEPRAZOLE
  7. DESLORATADINE. [Concomitant]
     Active Substance: DESLORATADINE
  8. PARACETAMOL [Concomitant]
     Active Substance: ACETAMINOPHEN
  9. TRIMETAZIDINE HYDROCHLORIDE [Concomitant]
     Active Substance: TRIMETAZIDINE DIHYDROCHLORIDE
  10. PHLOROGLUCINOL [Concomitant]
     Active Substance: PHLOROGLUCINOL

REACTIONS (1)
  - Acute pulmonary oedema [Recovered/Resolved]

NARRATIVE: CASE EVENT DATE: 20190328
